FAERS Safety Report 6602790-6 (Version None)
Quarter: 2010Q1

REPORT INFORMATION
  Report Type: 
  Country: None (occurrence: None)
  Receive Date: 20100226
  Receipt Date: 20100219
  Transmission Date: 20100710
  Serious: Yes (Other)
  Sender: FDA-Public Use
  Company Number: US-ASTRAZENECA-2010SE07709

PATIENT
  Sex: Male

DRUGS (2)
  1. SEROQUEL [Suspect]
     Route: 048
     Dates: start: 20050818, end: 20060424
  2. RISPERDAL [Suspect]
     Dates: start: 20070716, end: 20080508

REACTIONS (12)
  - AKATHISIA [None]
  - ANXIETY [None]
  - BLEPHAROSPASM [None]
  - BREAST TENDERNESS [None]
  - DYSKINESIA [None]
  - DYSTONIA [None]
  - GYNAECOMASTIA [None]
  - HYPERPROLACTINAEMIA [None]
  - PROTRUSION TONGUE [None]
  - SPEECH DISORDER [None]
  - SUICIDAL IDEATION [None]
  - TARDIVE DYSKINESIA [None]
